FAERS Safety Report 5904911-7 (Version None)
Quarter: 2008Q4

REPORT INFORMATION
  Report Type: 
  Country: None (occurrence: None)
  Receive Date: 20081001
  Receipt Date: 20080922
  Transmission Date: 20090506
  Serious: Yes (Other)
  Sender: FDA-Public Use
  Company Number: B0539453A

PATIENT
  Age: 81 Year
  Sex: Female

DRUGS (1)
  1. REQUIP XL [Suspect]
     Indication: PARKINSON'S DISEASE
     Route: 065

REACTIONS (4)
  - DEMENTIA [None]
  - DEMENTIA ALZHEIMER'S TYPE [None]
  - DRUG INEFFECTIVE [None]
  - IMMOBILE [None]
